FAERS Safety Report 10239599 (Version 3)
Quarter: 2014Q3

REPORT INFORMATION
  Report Type: Spontaneous
  Country: US (occurrence: US)
  Receive Date: 20140616
  Receipt Date: 20140725
  Transmission Date: 20150326
  Serious: Yes (Hospitalization, Other)
  Sender: FDA-Public Use
  Company Number: US-009507513-1406USA007397

PATIENT
  Sex: Female
  Weight: 41.72 kg

DRUGS (3)
  1. FOSAMAX [Suspect]
     Active Substance: ALENDRONATE SODIUM
     Indication: OSTEOPENIA
     Dosage: 70 MG, QW
     Route: 048
     Dates: start: 20020715
  2. FOSAMAX PLUS D [Suspect]
     Active Substance: ALENDRONATE SODIUM\CHOLECALCIFEROL
     Indication: OSTEOPENIA
     Dosage: 70 MG/2800 MG, QW
     Route: 048
     Dates: start: 20070301, end: 200812
  3. ALENDRONATE SODIUM. [Suspect]
     Active Substance: ALENDRONATE SODIUM
     Indication: OSTEOPENIA
     Dosage: 70 MG, QW
     Route: 048
     Dates: start: 20081226, end: 20120806

REACTIONS (21)
  - Intraocular lens implant [Unknown]
  - Peripheral coldness [Unknown]
  - Hysterectomy [Unknown]
  - Actinic keratosis [Unknown]
  - Haemoglobin decreased [Unknown]
  - Vitamin B12 deficiency [Unknown]
  - Keratoconus [Unknown]
  - Hyperlipidaemia [Unknown]
  - Bursitis [Unknown]
  - Femur fracture [Recovered/Resolved]
  - Deep vein thrombosis [Unknown]
  - Humerus fracture [Unknown]
  - Pulse absent [Unknown]
  - Intramedullary rod insertion [Unknown]
  - Femur fracture [Unknown]
  - Smear cervix abnormal [Unknown]
  - Foot deformity [Unknown]
  - Haematocrit decreased [Unknown]
  - Maculopathy [Unknown]
  - Intramedullary rod insertion [Unknown]
  - Hand fracture [Unknown]

NARRATIVE: CASE EVENT DATE: 20070113
